FAERS Safety Report 6577004-6 (Version None)
Quarter: 2010Q1

REPORT INFORMATION
  Report Type: 
  Country: None (occurrence: None)
  Receive Date: 20100210
  Receipt Date: 20100202
  Transmission Date: 20100710
  Serious: Yes (Other)
  Sender: FDA-Public Use
  Company Number: GXKR2010IT01428

PATIENT
  Age: 57 Year
  Sex: Male
  Weight: 70 kg

DRUGS (3)
  1. CYCLOSPORINE [Suspect]
     Indication: PROPHYLAXIS AGAINST TRANSPLANT REJECTION
     Dosage: UNK
     Route: 065
     Dates: start: 20040101
  2. TACROLIMUS [Suspect]
     Indication: IMMUNOSUPPRESSION
     Route: 065
  3. PREDNISONE [Concomitant]
     Indication: IMMUNOSUPPRESSION
     Route: 065

REACTIONS (7)
  - ABDOMINAL PAIN [None]
  - CONSTIPATION [None]
  - INTESTINAL DILATATION [None]
  - SMALL INTESTINAL RESECTION [None]
  - SPLENOMEGALY [None]
  - THROMBOTIC MICROANGIOPATHY [None]
  - TRANSPLANT REJECTION [None]
